FAERS Safety Report 22596607 (Version 1)
Quarter: 2023Q2

REPORT INFORMATION
  Report Type: Report from Study
  Country: US (occurrence: US)
  Receive Date: 20230613
  Receipt Date: 20230613
  Transmission Date: 20230721
  Serious: Yes (Hospitalization, Other)
  Sender: FDA-Public Use
  Company Number: US-ABBVIE-5281952

PATIENT
  Age: 77 Year
  Sex: Female
  Weight: 67.131 kg

DRUGS (6)
  1. ARMOUR THYROID [Suspect]
     Active Substance: THYROID, PORCINE
     Indication: Hypothyroidism
     Dosage: 30 MILLIGRAM
     Route: 048
     Dates: start: 1973
  2. GABAPENTIN [Concomitant]
     Active Substance: GABAPENTIN
     Indication: Pain
  3. VITAMIN B12 [Concomitant]
     Active Substance: CYANOCOBALAMIN
     Indication: Vitamin supplementation
  4. IRON [Concomitant]
     Active Substance: IRON
     Indication: Mineral supplementation
  5. OXYCODONE [Concomitant]
     Active Substance: OXYCODONE
     Indication: Pain
  6. IMODIUM [Concomitant]
     Active Substance: LOPERAMIDE HYDROCHLORIDE
     Indication: Abdominal pain

REACTIONS (5)
  - Colon cancer [Unknown]
  - Spinal column injury [Recovering/Resolving]
  - Abdominal pain [Recovered/Resolved]
  - Traumatic intracranial haemorrhage [Recovering/Resolving]
  - Fall [Recovering/Resolving]

NARRATIVE: CASE EVENT DATE: 20210401
